FAERS Safety Report 5778616-X (Version None)
Quarter: 2008Q2

REPORT INFORMATION
  Report Type: 
  Country: None (occurrence: None)
  Receive Date: 20080618
  Receipt Date: 20080618
  Transmission Date: 20081010
  Serious: Yes (Other)
  Sender: FDA-Public Use
  Company Number: None

PATIENT
  Sex: Female
  Weight: 111.5 kg

DRUGS (1)
  1. TAXOL [Suspect]
     Dates: start: 20080513, end: 20080513

REACTIONS (3)
  - BACK PAIN [None]
  - BLOOD PRESSURE INCREASED [None]
  - DYSPEPSIA [None]
